FAERS Safety Report 5277732-9 (Version None)
Quarter: 2007Q1

REPORT INFORMATION
  Report Type: 
  Country: None (occurrence: None)
  Receive Date: 20070327
  Receipt Date: 20070315
  Transmission Date: 20070707
  Serious: Yes (Other)
  Sender: FDA-Public Use
  Company Number: US-PFIZER INC-2007020548

PATIENT
  Age: 19 Year

DRUGS (1)
  1. CHANTIX [Suspect]

REACTIONS (1)
  - GASTRIC HAEMORRHAGE [None]
